FAERS Safety Report 5586858-1 (Version None)
Quarter: 2008Q1

REPORT INFORMATION
  Report Type: 
  Country: None (occurrence: None)
  Receive Date: 20080110
  Receipt Date: 20070319
  Transmission Date: 20080703
  Serious: No
  Sender: FDA-Public Use
  Company Number: US-BRISTOL-MYERS SQUIBB COMPANY-13718465

PATIENT
  Sex: Male
  Weight: 102 kg

DRUGS (6)
  1. CISPLATIN [Suspect]
     Indication: NEOPLASM MALIGNANT
  2. PACLITAXEL [Suspect]
     Indication: NEOPLASM MALIGNANT
  3. FLUOROURACIL [Suspect]
     Indication: NEOPLASM MALIGNANT
  4. LIPITOR [Concomitant]
  5. PROPRANOLOL [Concomitant]
  6. LEVOTHYROXINE SODIUM [Concomitant]

REACTIONS (4)
  - AMNESIA [None]
  - BALANCE DISORDER [None]
  - MUSCULAR WEAKNESS [None]
  - NEUROPATHY PERIPHERAL [None]
